FAERS Safety Report 7862126-X (Version None)
Quarter: 2011Q4

REPORT INFORMATION
  Report Type: 
  Country: None (occurrence: None)
  Receive Date: 20111027
  Receipt Date: 20101102
  Transmission Date: 20120403
  Serious: No
  Sender: FDA-Public Use
  Company Number: US-AMGEN-KDL390646

PATIENT
  Age: 56 Year
  Sex: Female

DRUGS (2)
  1. ENBREL [Suspect]
     Indication: PSORIASIS
     Dosage: 50 MG, QWK
     Route: 058
     Dates: start: 20050901
  2. ZOLOFT [Concomitant]
     Dosage: 100 MG, UNK

REACTIONS (5)
  - PSORIASIS [None]
  - INJECTION SITE PRURITUS [None]
  - LOWER LIMB FRACTURE [None]
  - INJECTION SITE SWELLING [None]
  - ACCIDENT [None]
